FAERS Safety Report 13630695 (Version 1)
Quarter: 2017Q2

REPORT INFORMATION
  Report Type: Spontaneous
  Country: US (occurrence: US)
  Receive Date: 20170531
  Receipt Date: 20170531
  Transmission Date: 20170830
  Serious: No
  Sender: FDA-Public Use
  Company Number: US-ASTELLAS-1321813

PATIENT
  Age: 57 Year
  Sex: Female

DRUGS (7)
  1. DOXYCYCLINE HYCLATE. [Concomitant]
     Active Substance: DOXYCYCLINE HYCLATE
  2. CYPROHEPTADINE. [Concomitant]
     Active Substance: CYPROHEPTADINE
  3. ATENOLOL. [Concomitant]
     Active Substance: ATENOLOL
  4. ENALAPRIL [Concomitant]
     Active Substance: ENALAPRIL
  5. NORVASC [Concomitant]
     Active Substance: AMLODIPINE BESYLATE
  6. TARCEVA [Suspect]
     Active Substance: ERLOTINIB HYDROCHLORIDE
     Indication: LUNG NEOPLASM MALIGNANT
     Route: 048
     Dates: start: 20131220
  7. ZOLPIDEM TARTRATE. [Concomitant]
     Active Substance: ZOLPIDEM TARTRATE

REACTIONS (5)
  - Hair growth abnormal [Unknown]
  - Rash [Unknown]
  - Paraesthesia [Unknown]
  - Viral upper respiratory tract infection [Unknown]
  - Hot flush [Unknown]

NARRATIVE: CASE EVENT DATE: 20140113
